FAERS Safety Report 7863028-5 (Version None)
Quarter: 2011Q4

REPORT INFORMATION
  Report Type: 
  Country: None (occurrence: None)
  Receive Date: 20111027
  Receipt Date: 20101123
  Transmission Date: 20120403
  Serious: No
  Sender: FDA-Public Use
  Company Number: US-AMGEN-TCS429510

PATIENT
  Age: 51 Year
  Sex: Female
  Weight: 136 kg

DRUGS (4)
  1. ENBREL [Suspect]
     Indication: PSORIASIS
     Dosage: 50 MG, QWK
     Route: 058
     Dates: start: 20100413
  2. ENBREL [Suspect]
     Indication: PSORIATIC ARTHROPATHY
  3. FOLIC ACID [Concomitant]
     Indication: PSORIATIC ARTHROPATHY
     Dosage: 1 MG, QD
     Route: 048
     Dates: start: 20030101
  4. METHOTREXATE [Concomitant]
     Indication: PSORIATIC ARTHROPATHY
     Dosage: 20 MG, QWK
     Route: 048
     Dates: start: 20030101

REACTIONS (3)
  - INJECTION SITE DISCOLOURATION [None]
  - INJECTION SITE SWELLING [None]
  - INJECTION SITE RASH [None]
